FAERS Safety Report 23258669 (Version 1)
Quarter: 2023Q4

REPORT INFORMATION
  Report Type: Report from Study
  Country: NL (occurrence: NL)
  Receive Date: 20231204
  Receipt Date: 20231204
  Transmission Date: 20240110
  Serious: Yes (Hospitalization)
  Sender: FDA-Public Use
  Company Number: NL-AstraZeneca-2023A270032

PATIENT
  Age: 10 Month
  Sex: Male
  Weight: 8.1 kg

DRUGS (3)
  1. SYNAGIS [Suspect]
     Active Substance: PALIVIZUMAB
     Indication: Premature baby
     Dosage: MONTHLY
     Route: 030
     Dates: start: 20230905
  2. SYNAGIS [Suspect]
     Active Substance: PALIVIZUMAB
     Dosage: MONTHLY
     Route: 030
     Dates: start: 20230905
  3. FERROCHEL DRANK [Concomitant]
     Indication: Product used for unknown indication

REACTIONS (1)
  - Respiratory syncytial virus infection [Not Recovered/Not Resolved]
